FAERS Safety Report 8909815 (Version 2)
Quarter: 2012Q4

REPORT INFORMATION
  Report Type: Report from Study
  Country: CA (occurrence: CA)
  Receive Date: 20121115
  Receipt Date: 20121217
  Transmission Date: 20130627
  Serious: Yes (Other)
  Sender: FDA-Public Use
  Company Number: CA-JNJFOC-20121104880

PATIENT
  Sex: Male
  Weight: 70.7 kg

DRUGS (6)
  1. REMICADE [Suspect]
     Indication: CROHN^S DISEASE
     Route: 042
     Dates: start: 200101
  2. REMICADE [Suspect]
     Indication: CROHN^S DISEASE
     Route: 042
     Dates: start: 200112
  3. CIPRO [Concomitant]
     Route: 065
  4. FLAGYL [Concomitant]
     Route: 065
  5. LOMOTIL [Concomitant]
     Route: 065
  6. OXYCODONE [Concomitant]
     Route: 065

REACTIONS (3)
  - Fistula [Not Recovered/Not Resolved]
  - Weight decreased [Not Recovered/Not Resolved]
  - Pain [Not Recovered/Not Resolved]
